FAERS Safety Report 6610923-0 (Version None)
Quarter: 2010Q1

REPORT INFORMATION
  Report Type: 
  Country: None (occurrence: None)
  Receive Date: 20100222
  Receipt Date: 20100217
  Transmission Date: 20100710
  Serious: Yes (Hospitalization)
  Sender: FDA-Public Use
  Company Number: 2010000435

PATIENT
  Age: 56 Year
  Sex: Male

DRUGS (7)
  1. NUVIGIL [Suspect]
     Indication: ASTHENIA
     Dosage: 150 MG (150 MG, 1 IN 1 D), ORAL
     Route: 048
     Dates: start: 20091202, end: 20100106
  2. OXYCONTIN [Concomitant]
  3. TOPAMAX [Concomitant]
  4. PAXIL [Concomitant]
  5. TRAZODONE HCL [Concomitant]
  6. RESTORIL (CHLORMEZANONE) [Concomitant]
  7. SWINE FLU VACCINATION (VACCINES) [Concomitant]

REACTIONS (9)
  - BLOOD URINE PRESENT [None]
  - BURNING SENSATION [None]
  - DYSURIA [None]
  - GUILLAIN-BARRE SYNDROME [None]
  - HYPOAESTHESIA [None]
  - OEDEMA PERIPHERAL [None]
  - PAIN IN EXTREMITY [None]
  - PENILE OEDEMA [None]
  - RENAL DISORDER [None]
